FAERS Safety Report 20791099 (Version 1)
Quarter: 2022Q2

REPORT INFORMATION
  Report Type: Spontaneous
  Country: US (occurrence: US)
  Receive Date: 20220505
  Receipt Date: 20220505
  Transmission Date: 20220721
  Serious: No
  Sender: FDA-Public Use
  Company Number: US-PFIZER INC-202200038384

PATIENT
  Age: 16 Year
  Sex: Female

DRUGS (7)
  1. EUCRISA [Suspect]
     Active Substance: CRISABOROLE
     Indication: Dermatitis atopic
     Dosage: TWICE DAILY, AS NEEDED
     Route: 061
  2. ALLEGRA [Concomitant]
     Active Substance: FEXOFENADINE HYDROCHLORIDE
     Indication: Pruritus
     Dosage: UNK, AS NEEDED
  3. ALLEGRA [Concomitant]
     Active Substance: FEXOFENADINE HYDROCHLORIDE
     Indication: Rash
  4. HYDROXYZINE [Concomitant]
     Active Substance: HYDROXYZINE HYDROCHLORIDE
     Dosage: UNK, AS NEEDED
  5. KETOTIFEN [Concomitant]
     Active Substance: KETOTIFEN
     Dosage: UNK, AS NEEDED
  6. HYDROCORTISONE [Concomitant]
     Active Substance: HYDROCORTISONE
     Dosage: AFFECTED AREA BID PRN ON BODY
     Route: 061
  7. TRIAMCINOLONE [Concomitant]
     Active Substance: TRIAMCINOLONE
     Dosage: AFFECTED AREA BID PRN ON BODY
     Route: 061

REACTIONS (1)
  - Condition aggravated [Unknown]
